FAERS Safety Report 11574966 (Version 1)
Quarter: 2015Q3

REPORT INFORMATION
  Report Type: Spontaneous
  Country: US (occurrence: None)
  Receive Date: 20150929
  Receipt Date: 20150929
  Transmission Date: 20151125
  Serious: No
  Sender: FDA-Public Use
  Company Number: None

PATIENT

DRUGS (2)
  1. CALCIUM GLUCONATE 10% 100 MG/ML 10 ML VIALS [Suspect]
     Active Substance: CALCIUM GLUCONATE
  2. STERILE WATER [Suspect]
     Active Substance: WATER

REACTIONS (1)
  - Product packaging confusion [None]

NARRATIVE: CASE EVENT DATE: 20150908
